FAERS Safety Report 4279050-4 (Version None)
Quarter: 2004Q1

REPORT INFORMATION
  Report Type: 
  Country: None (occurrence: None)
  Receive Date: 20040122
  Receipt Date: 20040113
  Transmission Date: 20041129
  Serious: Yes (Other)
  Sender: FDA-Public Use
  Company Number: DSA_60384_2004

PATIENT
  Age: 48 Year
  Sex: Female

DRUGS (2)
  1. PRIMIDONE [Suspect]
     Indication: EPILEPSY
  2. LAMOTRIGINE [Concomitant]

REACTIONS (8)
  - COMPLEX PARTIAL SEIZURES [None]
  - DEPRESSION [None]
  - DRUG INEFFECTIVE [None]
  - OBSESSIVE-COMPULSIVE DISORDER [None]
  - PARANOIA [None]
  - SIMPLE PARTIAL SEIZURES [None]
  - TIC [None]
  - TOURETTE'S DISORDER [None]
